FAERS Safety Report 22661689 (Version 1)
Quarter: 2023Q2

REPORT INFORMATION
  Report Type: Spontaneous
  Country: CR (occurrence: CR)
  Receive Date: 20230630
  Receipt Date: 20230630
  Transmission Date: 20230721
  Serious: Yes (Hospitalization, Other)
  Sender: FDA-Public Use
  Company Number: CR-PFIZER INC-PV202300107403

PATIENT
  Age: 51 Year
  Sex: Male

DRUGS (2)
  1. VIZIMPRO [Suspect]
     Active Substance: DACOMITINIB
     Dosage: 45 MG, DAILY
  2. VIZIMPRO [Suspect]
     Active Substance: DACOMITINIB
     Dosage: 50 MG, WEEKLY
     Route: 058

REACTIONS (7)
  - Diarrhoea [Recovering/Resolving]
  - Dehydration [Recovered/Resolved]
  - Rash pruritic [Unknown]
  - Dry skin [Unknown]
  - Nasal discomfort [Not Recovered/Not Resolved]
  - Incorrect dose administered [Unknown]
  - Incorrect route of product administration [Unknown]
